FAERS Safety Report 8817584 (Version 3)
Quarter: 2014Q2

REPORT INFORMATION
  Report Type: Spontaneous
  Country: US (occurrence: US)
  Receive Date: 20121001
  Receipt Date: 20140428
  Transmission Date: 20141212
  Serious: Yes (Hospitalization)
  Sender: FDA-Public Use
  Company Number: US-BAYER-2012-100243

PATIENT
  Age: 23 Year
  Sex: Female
  Weight: 100 kg

DRUGS (16)
  1. YAZ [Suspect]
     Indication: PREMENSTRUAL SYNDROME
     Dosage: UNK
     Dates: start: 20000101
  2. IMITREX [Concomitant]
     Dosage: UNK
  3. TOPAMAX [Concomitant]
     Dosage: UNK
     Dates: start: 1996
  4. MELATONIN [Concomitant]
     Indication: SLEEP DISORDER
  5. ORAL CONTRACEPTIVE NOS [Concomitant]
     Indication: CYST
     Dosage: UNK
     Dates: start: 1997
  6. CELEXA [Concomitant]
     Indication: DEPRESSION
     Dosage: UNK
     Dates: start: 1996
  7. CELEXA [Concomitant]
     Indication: ANXIETY
  8. ZITHROMAX [Concomitant]
     Dosage: 250 MG, UNK
     Route: 048
     Dates: start: 20060804
  9. ENTEX PSE [Concomitant]
     Dosage: 600-120MG
     Route: 048
     Dates: start: 20060804
  10. ADIPEX [Concomitant]
     Dosage: 3.5 MG, UNK
     Route: 048
     Dates: start: 20060624, end: 20060921
  11. DAYPRO [Concomitant]
     Dosage: 600 MG, UNK
     Route: 048
     Dates: start: 20060621, end: 20060921
  12. LIDODERM [Concomitant]
     Dosage: 5 %, UNK
     Route: 061
  13. AMBIEN [Concomitant]
     Dosage: 10 MG, UNK
     Route: 048
     Dates: start: 20060621, end: 20060925
  14. LAMICTAL [Concomitant]
     Dosage: 25 MG, UNK
     Route: 048
  15. PROTONIX [Concomitant]
     Dosage: 40 MG, UNK
     Route: 048
     Dates: start: 20060621, end: 20060925
  16. PERCOCET [Concomitant]

REACTIONS (9)
  - Cholecystectomy [None]
  - Emotional distress [None]
  - Pain [None]
  - Injury [None]
  - General physical health deterioration [None]
  - Anxiety [None]
  - Anhedonia [None]
  - Pain [None]
  - Cholecystitis acute [None]
